FAERS Safety Report 10079480 (Version 1)
Quarter: 2014Q2

REPORT INFORMATION
  Report Type: Spontaneous
  Country: US (occurrence: US)
  Receive Date: 20140415
  Receipt Date: 20140415
  Transmission Date: 20141212
  Serious: Yes (Other)
  Sender: FDA-Public Use
  Company Number: US-AMGEN-USASP2014025801

PATIENT
  Sex: 0

DRUGS (1)
  1. XGEVA [Suspect]
     Indication: PRODUCT USED FOR UNKNOWN INDICATION
     Route: 065

REACTIONS (5)
  - Osteonecrosis of jaw [Unknown]
  - Malignant neoplasm progression [Not Recovered/Not Resolved]
  - Mastication disorder [Unknown]
  - Pain in jaw [Recovering/Resolving]
  - Mouth ulceration [Recovered/Resolved]
